FAERS Safety Report 24258966 (Version 1)
Quarter: 2024Q3

REPORT INFORMATION
  Report Type: Spontaneous
  Country: KR (occurrence: KR)
  Receive Date: 20240828
  Receipt Date: 20240828
  Transmission Date: 20241017
  Serious: No
  Sender: PFIZER
  Company Number: KR-PFIZER INC-PV202400110733

PATIENT

DRUGS (1)
  1. GENOTROPIN [Suspect]
     Active Substance: SOMATROPIN
     Dosage: 5.4 IU

REACTIONS (3)
  - Device defective [Unknown]
  - Device information output issue [Unknown]
  - Drug dose omission by device [Unknown]
